FAERS Safety Report 9913489 (Version 1)
Quarter: 2014Q1

REPORT INFORMATION
  Report Type: Spontaneous
  Country: US (occurrence: None)
  Receive Date: 20140214
  Receipt Date: 20140214
  Transmission Date: 20141002
  Serious: Yes (Other)
  Sender: FDA-Public Use
  Company Number: AUR-APL-2014-01464

PATIENT
  Age: 36 Year
  Sex: Female

DRUGS (10)
  1. HYDROCHLOROTHIAZIDE [Suspect]
     Route: 048
  2. NEURONTIN (GABAPENTIN) [Suspect]
     Route: 048
  3. VICODIN [Suspect]
     Dosage: (1-2 TABS) EVERY 4 HOURS AS NEEDED
     Route: 048
  4. VICODIN [Suspect]
     Dosage: (1-2 TABS) EVERY 4 HOURS AS NEEDED
     Route: 048
  5. PROZAC (FLUOXETINE HYDROCHLORIDE) [Suspect]
     Route: 048
  6. PROZAC (FLUOXETINE HYDROCHLORIDE) [Suspect]
     Route: 048
  7. ABILIFY (ARIPIPRAZOLE) [Suspect]
     Route: 048
  8. ABILIFY (ARIPIPRAZOLE) [Suspect]
     Route: 048
  9. KLONOPIN [Suspect]
     Dosage: 2 MG (1 MG,2 IN 1 D)
     Route: 048
  10. KLONOPIN [Suspect]
     Dosage: 2 MG (1 MG,2 IN 1 D)
     Route: 048

REACTIONS (27)
  - Arthralgia [None]
  - Arthralgia [None]
  - Chest pain [None]
  - Neck pain [None]
  - Back pain [None]
  - Fatigue [None]
  - Insomnia [None]
  - Local swelling [None]
  - Musculoskeletal stiffness [None]
  - Diarrhoea [None]
  - Dry eye [None]
  - Deafness [None]
  - Pain in jaw [None]
  - Wheezing [None]
  - Dyspnoea exertional [None]
  - Snoring [None]
  - Migraine [None]
  - Dizziness [None]
  - Syncope [None]
  - Hypoaesthesia [None]
  - Balance disorder [None]
  - Insomnia [None]
  - Depression [None]
  - Anxiety [None]
  - Paraesthesia [None]
  - Dry skin [None]
  - Tenderness [None]
